FAERS Safety Report 21904376 (Version 1)
Quarter: 2023Q1

REPORT INFORMATION
  Report Type: Spontaneous
  Country: CN (occurrence: CN)
  Receive Date: 20230124
  Receipt Date: 20230124
  Transmission Date: 20230418
  Serious: Yes (Other)
  Sender: FDA-Public Use
  Company Number: None

PATIENT
  Age: 41 Year
  Sex: Female
  Weight: 50 kg

DRUGS (7)
  1. CYCLOPHOSPHAMIDE [Suspect]
     Active Substance: CYCLOPHOSPHAMIDE
     Indication: Breast cancer female
     Dosage: 800 MG, QD (ST), D1 Q14D, DILUTE WITH 100 ML 0.9% SODIUM CHLORIDE
     Route: 041
     Dates: start: 20221231, end: 20221231
  2. CYCLOPHOSPHAMIDE [Suspect]
     Active Substance: CYCLOPHOSPHAMIDE
     Indication: Chemotherapy
  3. SODIUM CHLORIDE [Suspect]
     Active Substance: SODIUM CHLORIDE
     Indication: Medication dilution
     Dosage: 100 ML, QD (ST), D1 Q14D, USED TO DILUTE 800 MG CYCLOPHOSPHAMIDE
     Route: 041
     Dates: start: 20221231, end: 20221231
  4. DEXTROSE [Suspect]
     Active Substance: DEXTROSE
     Indication: Medication dilution
     Dosage: 100 ML, QD (ST), D1 Q14D, USED TO DILUTE 80 MG PIRARUBICIN HYDROCHLORIDE
     Route: 041
     Dates: start: 20221231, end: 20221231
  5. PIRARUBICIN HYDROCHLORIDE [Suspect]
     Active Substance: PIRARUBICIN HYDROCHLORIDE
     Indication: Breast cancer female
     Dosage: 80 MG, ST D1 Q14D, DILUTED WITH 100 ML 5 % GLUCOSE
     Route: 041
     Dates: start: 20221231, end: 20221231
  6. PIRARUBICIN HYDROCHLORIDE [Suspect]
     Active Substance: PIRARUBICIN HYDROCHLORIDE
     Indication: Chemotherapy
  7. Jin you li [Concomitant]
     Indication: Prophylaxis
     Dosage: 6 MG ST, START DATE: JAN-2023
     Route: 058

REACTIONS (1)
  - Granulocytopenia [Recovered/Resolved]

NARRATIVE: CASE EVENT DATE: 20230108
